FAERS Safety Report 11090605 (Version 2)
Quarter: 2015Q2

REPORT INFORMATION
  Report Type: Spontaneous
  Country: PL (occurrence: PL)
  Receive Date: 20150505
  Receipt Date: 20150513
  Transmission Date: 20150821
  Serious: Yes (Other)
  Sender: FDA-Public Use
  Company Number: PHHY2015PL052383

PATIENT
  Age: 63 Year
  Sex: Female

DRUGS (2)
  1. SUNITINIB [Concomitant]
     Active Substance: SUNITINIB
     Indication: PRODUCT USED FOR UNKNOWN INDICATION
     Route: 065
  2. ZOLEDRONATE [Suspect]
     Active Substance: ZOLEDRONIC ACID
     Indication: PRODUCT USED FOR UNKNOWN INDICATION
     Route: 042

REACTIONS (6)
  - Osteitis [Unknown]
  - Tooth infection [Unknown]
  - Pulpitis dental [Unknown]
  - Bone loss [Unknown]
  - Condition aggravated [Unknown]
  - Osteonecrosis of jaw [Unknown]
